FAERS Safety Report 6736788-4 (Version None)
Quarter: 2010Q2

REPORT INFORMATION
  Report Type: 
  Country: None (occurrence: None)
  Receive Date: 20100521
  Receipt Date: 20100510
  Transmission Date: 20101027
  Serious: Yes (Hospitalization, Other)
  Sender: FDA-Public Use
  Company Number: ES-ELI_LILLY_AND_COMPANY-ES201005002482

PATIENT
  Sex: Female
  Weight: 52 kg

DRUGS (4)
  1. FORTEO [Suspect]
     Indication: OSTEOPOROSIS
     Dosage: 20 UG, DAILY (1/D)
     Route: 058
     Dates: start: 20090122
  2. SIMVASTATIN [Concomitant]
     Indication: BLOOD CHOLESTEROL
     Dosage: 40 MG, DAILY (1/D)
     Route: 048
  3. LORAZEPAM [Concomitant]
     Indication: ANXIOLYTIC THERAPY
     Dosage: 1 MG, 1/2 THREE TIMES A DAY
     Route: 048
  4. SOMAZINA [Concomitant]
     Indication: CEREBROVASCULAR DISORDER
     Dosage: 1000 MG, DAILY (1/D)
     Route: 048

REACTIONS (3)
  - CEREBROVASCULAR DISORDER [None]
  - SKULL FRACTURE [None]
  - SYNCOPE [None]
